FAERS Safety Report 9679586 (Version 1)
Quarter: 2013Q4

REPORT INFORMATION
  Report Type: Spontaneous
  Country: US (occurrence: US)
  Receive Date: 20131109
  Receipt Date: 20131109
  Transmission Date: 20140711
  Serious: No
  Sender: FDA-Public Use
  Company Number: US-SA-2013SA105247

PATIENT
  Age: 34 Year
  Sex: Female

DRUGS (2)
  1. ALLEGRA-D [Suspect]
     Indication: HYPERSENSITIVITY
     Route: 048
     Dates: start: 20131009, end: 20131009
  2. ALLEGRA-D [Suspect]
     Indication: UNEVALUABLE EVENT
     Route: 048
     Dates: start: 20131009, end: 20131009

REACTIONS (5)
  - Feeling jittery [Not Recovered/Not Resolved]
  - Feeling abnormal [Not Recovered/Not Resolved]
  - Palpitations [Not Recovered/Not Resolved]
  - Blood pressure increased [Not Recovered/Not Resolved]
  - Dizziness [Not Recovered/Not Resolved]
